FAERS Safety Report 8084835-2 (Version None)
Quarter: 2012Q1

REPORT INFORMATION
  Report Type: 
  Country: None (occurrence: None)
  Receive Date: 20120128
  Receipt Date: 20110323
  Transmission Date: 20120608
  Serious: No
  Sender: FDA-Public Use
  Company Number: US-ABBOTT-11P-163-0713663-00

PATIENT
  Sex: Male
  Weight: 72.64 kg

DRUGS (2)
  1. HUMIRA [Suspect]
     Indication: PSORIATIC ARTHROPATHY
     Route: 058
     Dates: start: 20101118, end: 20110322
  2. HUMIRA [Suspect]
     Route: 058

REACTIONS (5)
  - SKIN PAPILLOMA [None]
  - RASH [None]
  - PSORIATIC ARTHROPATHY [None]
  - MEMORY IMPAIRMENT [None]
  - FEELING ABNORMAL [None]
